FAERS Safety Report 10370787 (Version 1)
Quarter: 2014Q3

REPORT INFORMATION
  Report Type: Spontaneous
  Country: US (occurrence: None)
  Receive Date: 20140806
  Receipt Date: 20140806
  Transmission Date: 20150326
  Serious: Yes (Hospitalization)
  Sender: FDA-Public Use
  Company Number: 2465203

PATIENT
  Age: 85 Year
  Sex: Male

DRUGS (6)
  1. PILOCARPINE [Concomitant]
     Active Substance: PILOCARPINE
  2. METOCLOPRAMIDE. [Suspect]
     Active Substance: METOCLOPRAMIDE
     Indication: ABDOMINAL DISCOMFORT
     Dosage: 1 DAY
  3. FUROSEMDIE [Concomitant]
  4. QUINIDINE GLUCONATE. [Concomitant]
     Active Substance: QUINIDINE GLUCONATE
  5. TIMOLOL [Concomitant]
     Active Substance: TIMOLOL
  6. METOCLOPRAMIDE. [Suspect]
     Active Substance: METOCLOPRAMIDE
     Indication: ERUCTATION
     Dosage: 1 DAY

REACTIONS (8)
  - Dysphagia [None]
  - Major depression [None]
  - Partner stress [None]
  - Delusion [None]
  - Parkinsonism [None]
  - Decreased appetite [None]
  - Anxiety [None]
  - Insomnia [None]
